FAERS Safety Report 25610108 (Version 3)
Quarter: 2025Q4

REPORT INFORMATION
  Report Type: Report from Study
  Country: CA (occurrence: None)
  Receive Date: 20250728
  Receipt Date: 20251118
  Transmission Date: 20260118
  Serious: Yes (Hospitalization, Other)
  Sender: UCB
  Company Number: CA-UCBSA-2025018837

PATIENT

DRUGS (2)
  1. CERTOLIZUMAB PEGOL [Suspect]
     Active Substance: CERTOLIZUMAB PEGOL
     Indication: Ankylosing spondylitis
     Dosage: 400 MILLIGRAM, EV 2 WEEKS(QOW)
  2. CERTOLIZUMAB PEGOL [Suspect]
     Active Substance: CERTOLIZUMAB PEGOL
     Dosage: 200 MILLIGRAM, EV 2 WEEKS(QOW)

REACTIONS (8)
  - Hospitalisation [Unknown]
  - Ankylosing spondylitis [Not Recovered/Not Resolved]
  - Illness [Unknown]
  - Gastrointestinal disorder [Not Recovered/Not Resolved]
  - Stress [Not Recovered/Not Resolved]
  - BASDAI score increased [Not Recovered/Not Resolved]
  - Headache [Not Recovered/Not Resolved]
  - Product storage error [Unknown]
